FAERS Safety Report 9248851 (Version 1)
Quarter: 2013Q2

REPORT INFORMATION
  Report Type: Report from Study
  Country: US (occurrence: US)
  Receive Date: 20130423
  Receipt Date: 20130423
  Transmission Date: 20140414
  Serious: Yes (Hospitalization)
  Sender: FDA-Public Use
  Company Number: US-ROCHE-1216316

PATIENT
  Age: 45 Year
  Sex: Female

DRUGS (1)
  1. RITUXAN [Suspect]
     Indication: RHEUMATOID ARTHRITIS
     Route: 042
     Dates: start: 201209

REACTIONS (4)
  - Malaise [Unknown]
  - Urticaria [Unknown]
  - Ankle fracture [Unknown]
  - Ankle operation [Unknown]
